FAERS Safety Report 6074923-4 (Version None)
Quarter: 2009Q1

REPORT INFORMATION
  Report Type: 
  Country: None (occurrence: None)
  Receive Date: 20090212
  Receipt Date: 20090204
  Transmission Date: 20090719
  Serious: Yes (Hospitalization)
  Sender: FDA-Public Use
  Company Number: US-ASTRAZENECA-2009UW03233

PATIENT
  Age: 19759 Day
  Sex: Male

DRUGS (2)
  1. TOPROL-XL [Suspect]
     Route: 048
     Dates: start: 20071001
  2. CRESTOR [Suspect]
     Route: 048
     Dates: start: 20081001

REACTIONS (1)
  - CHEST PAIN [None]
